FAERS Safety Report 6253803-5 (Version None)
Quarter: 2009Q3

REPORT INFORMATION
  Report Type: 
  Country: None (occurrence: None)
  Receive Date: 20090702
  Receipt Date: 20070904
  Transmission Date: 20100115
  Serious: Yes (Other)
  Sender: FDA-Public Use
  Company Number: US-ASTRAZENECA-2006UW25678

PATIENT
  Age: 51 Year
  Sex: Female
  Weight: 83.9 kg

DRUGS (12)
  1. SEROQUEL [Suspect]
     Indication: SLEEP DISORDER
     Dosage: 12.5-300 MG
     Route: 048
     Dates: start: 19990128
  2. SEROQUEL [Suspect]
     Route: 048
     Dates: start: 19990101
  3. WELLBUTRIN [Concomitant]
  4. ILLICIT DRUGS [Concomitant]
     Dates: start: 19700101
  5. EFFEXOR XR [Concomitant]
     Dates: start: 19990128
  6. TEGRETOL [Concomitant]
     Indication: BIPOLAR DISORDER
     Dosage: 200-400 MG
     Route: 048
     Dates: start: 19990128
  7. PRILOSEC [Concomitant]
     Dosage: 20 MG, BID,PRN,2-3 TIMES A MONTH
     Route: 048
     Dates: start: 19990303
  8. ATENOLOL [Concomitant]
     Indication: HYPERTENSION
     Route: 048
     Dates: start: 19990303
  9. CARAFATE [Concomitant]
     Dosage: 1 GM,QID,PRN
     Route: 048
     Dates: start: 19990303
  10. PREMPRO [Concomitant]
     Dosage: 0.625/2.5 MG,QD
     Dates: start: 19990303
  11. GLUCOTROL XL [Concomitant]
     Dates: start: 20021203
  12. VERAPAMIL [Concomitant]
     Dates: start: 20021203

REACTIONS (4)
  - DIABETES MELLITUS [None]
  - DIABETIC NEUROPATHY [None]
  - TYPE 1 DIABETES MELLITUS [None]
  - TYPE 2 DIABETES MELLITUS [None]
